FAERS Safety Report 17256960 (Version 2)
Quarter: 2020Q3

REPORT INFORMATION
  Report Type: Spontaneous
  Country: US (occurrence: US)
  Receive Date: 20200110
  Receipt Date: 20200912
  Transmission Date: 20201102
  Serious: Yes (Hospitalization, Other)
  Sender: FDA-Public Use
  Company Number: US-NOVOPROD-705307

PATIENT
  Age: 44 Year
  Sex: Male

DRUGS (2)
  1. NOVOLOG [Suspect]
     Active Substance: INSULIN ASPART
     Indication: SUICIDE ATTEMPT
     Dosage: UNK
     Route: 058
     Dates: start: 20191104, end: 20191104
  2. NOVOLIN R [Suspect]
     Active Substance: INSULIN HUMAN
     Indication: SUICIDE ATTEMPT
     Dosage: UNK
     Route: 058
     Dates: start: 20191104, end: 20191104

REACTIONS (7)
  - Nervous system disorder [Unknown]
  - Suicide attempt [Recovered/Resolved]
  - Post-traumatic stress disorder [Unknown]
  - Intentional overdose [Recovered/Resolved]
  - Intentional product misuse [Recovered/Resolved]
  - Suicide attempt [Unknown]
  - Malaise [Unknown]

NARRATIVE: CASE EVENT DATE: 201911
